FAERS Safety Report 23755375 (Version 1)
Quarter: 2024Q2

REPORT INFORMATION
  Report Type: Spontaneous
  Country: DE (occurrence: DE)
  Receive Date: 20240418
  Receipt Date: 20240418
  Transmission Date: 20240716
  Serious: Yes (Death, Other)
  Sender: FDA-Public Use
  Company Number: DE-CADRBFARM-2024327133

PATIENT
  Age: 55 Year
  Sex: Male
  Weight: 100 kg

DRUGS (3)
  1. QUETIAPINE [Suspect]
     Active Substance: QUETIAPINE
     Indication: Craniocerebral injury
     Dosage: 300 MILLIGRAM, ONCE A DAY, A TOTAL OF 300MG PER DAY
     Route: 048
     Dates: start: 2015, end: 20240327
  2. QUETIAPINE [Suspect]
     Active Substance: QUETIAPINE
     Indication: Psychotic disorder
  3. QUETIAPINE [Suspect]
     Active Substance: QUETIAPINE
     Indication: Mental disorder

REACTIONS (2)
  - Loss of consciousness [Fatal]
  - Pulmonary oedema [Fatal]

NARRATIVE: CASE EVENT DATE: 20240327
